FAERS Safety Report 14937237 (Version 3)
Quarter: 2018Q3

REPORT INFORMATION
  Report Type: Report from Study
  Country: FR (occurrence: FR)
  Receive Date: 20180525
  Receipt Date: 20180827
  Transmission Date: 20181010
  Serious: Yes (Death, Other)
  Sender: FDA-Public Use
  Company Number: FR-JAZZ-2018-FR-008131

PATIENT

DRUGS (1)
  1. DEFITELIO [Suspect]
     Active Substance: DEFIBROTIDE SODIUM
     Indication: PRODUCT USED FOR UNKNOWN INDICATION
     Dosage: 25.5 MG/KG, QD
     Dates: start: 20151016, end: 20151021

REACTIONS (3)
  - Myelofibrosis [Fatal]
  - Haematemesis [Unknown]
  - Condition aggravated [Fatal]

NARRATIVE: CASE EVENT DATE: 20151204
